FAERS Safety Report 23378550 (Version 1)
Quarter: 2024Q1

REPORT INFORMATION
  Report Type: Spontaneous
  Country: US (occurrence: US)
  Receive Date: 20240108
  Receipt Date: 20240108
  Transmission Date: 20240409
  Serious: No
  Sender: FDA-Public Use
  Company Number: US-SA-SAC20240101001086

PATIENT
  Sex: Female
  Weight: 77.098 kg

DRUGS (2)
  1. DUPIXENT [Suspect]
     Active Substance: DUPILUMAB
     Indication: Dermatitis atopic
     Dosage: 300 MG, QW
     Route: 058
  2. DOXEPIN HCL [Concomitant]
     Active Substance: DOXEPIN HYDROCHLORIDE

REACTIONS (2)
  - Pruritus [Recovering/Resolving]
  - Inappropriate schedule of product administration [Unknown]
